FAERS Safety Report 23694446 (Version 3)
Quarter: 2024Q2

REPORT INFORMATION
  Report Type: Report from Study
  Country: US (occurrence: US)
  Receive Date: 20240401
  Receipt Date: 20240624
  Transmission Date: 20240716
  Serious: Yes (Hospitalization, Other)
  Sender: FDA-Public Use
  Company Number: US-ABBVIE-5698475

PATIENT
  Sex: Male

DRUGS (1)
  1. SKYRIZI [Suspect]
     Active Substance: RISANKIZUMAB-RZAA
     Indication: Product used for unknown indication
     Dosage: FREQUENCY TEXT: UNKNOWN?STOP DATE TEXT: UNKNOWN
     Route: 058
     Dates: start: 2020

REACTIONS (10)
  - Cardiac disorder [Unknown]
  - Illness [Recovered/Resolved]
  - Dizziness [Recovering/Resolving]
  - Neck pain [Unknown]
  - Chest pain [Unknown]
  - COVID-19 [Recovered/Resolved]
  - Lung disorder [Unknown]
  - Dizziness [Unknown]
  - Blood cholesterol increased [Recovering/Resolving]
  - Post-acute COVID-19 syndrome [Unknown]

NARRATIVE: CASE EVENT DATE: 20220101
